FAERS Safety Report 14727725 (Version 1)
Quarter: 2018Q2

REPORT INFORMATION
  Report Type: Report from Study
  Country: IT (occurrence: IT)
  Receive Date: 20180406
  Receipt Date: 20180406
  Transmission Date: 20180711
  Serious: Yes (Other)
  Sender: FDA-Public Use
  Company Number: IT-TEVA-2018-IT-877275

PATIENT

DRUGS (4)
  1. CISPLATIN. [Suspect]
     Active Substance: CISPLATIN
     Indication: HODGKIN^S DISEASE
     Dosage: AS A PART OF STANDARD DHAP SCHEDULE, EVERY 4 WEEKS, THE PLAN WAS TO ADMINISTER 3 CYCLES
     Route: 065
  2. DEXAMETHASONE. [Suspect]
     Active Substance: DEXAMETHASONE
     Indication: HODGKIN^S DISEASE
     Dosage: AS A PART OF STANDARD DHAP SCHEDULE, EVERY 4 WEEKS, THE PLAN WAS TO ADMINISTER 3 CYCLES
     Route: 065
  3. BENDAMUSTINE [Suspect]
     Active Substance: BENDAMUSTINE
     Indication: HODGKIN^S DISEASE
     Dosage: ON DAYS 1 AND 2, THE PLAN WAS TO ADMINISTER THREE CYCLES
     Route: 065
  4. CYTARABINE. [Suspect]
     Active Substance: CYTARABINE
     Indication: HODGKIN^S DISEASE
     Dosage: AS A PART OF STANDARD DHAP SCHEDULE, EVERY 4 WEEKS, THE PLAN WAS TO ADMINISTER 3 CYCLES
     Route: 065

REACTIONS (1)
  - Bone marrow failure [Unknown]
